FAERS Safety Report 23004781 (Version 4)
Quarter: 2024Q2

REPORT INFORMATION
  Report Type: Spontaneous
  Country: US (occurrence: US)
  Receive Date: 20230929
  Receipt Date: 20240530
  Transmission Date: 20240715
  Serious: No
  Sender: FDA-Public Use
  Company Number: US-BRISTOL-MYERS SQUIBB COMPANY-2023-137600

PATIENT
  Age: 62 Year
  Sex: Female

DRUGS (2)
  1. POMALYST [Suspect]
     Active Substance: POMALIDOMIDE
     Indication: Plasma cell myeloma
     Dosage: FREQ -QD FOR 21 DAYS ON AND 7 DAYS OFF
     Route: 048
     Dates: start: 20230607
  2. POMALYST [Suspect]
     Active Substance: POMALIDOMIDE
     Dosage: DOSE-2, FREQUENCY-DAILY FOR 21 DAYS
     Route: 048

REACTIONS (6)
  - Fatigue [Unknown]
  - Product dose omission issue [Unknown]
  - Abdominal discomfort [Unknown]
  - Diarrhoea [Unknown]
  - Dyspepsia [Unknown]
  - Oesophageal irritation [Unknown]

NARRATIVE: CASE EVENT DATE: 20230910
